FAERS Safety Report 6524955-4 (Version None)
Quarter: 2010Q1

REPORT INFORMATION
  Report Type: 
  Country: None (occurrence: None)
  Receive Date: 20100104
  Receipt Date: 20091217
  Transmission Date: 20100710
  Serious: No
  Sender: FDA-Public Use
  Company Number: US-B.I. PHARMACEUTICALS,INC./RIDGEFIELD-2009-BP-14630BP

PATIENT
  Age: 65 Year
  Sex: Female

DRUGS (9)
  1. MICARDIS [Suspect]
     Indication: HYPERTENSION
     Dosage: 80 MG
     Route: 048
     Dates: start: 20091201
  2. ATENOLOL [Concomitant]
     Indication: HYPERTENSION
  3. THYROID TAB [Concomitant]
     Indication: THYROID DISORDER
  4. PROZAC [Concomitant]
     Indication: DEPRESSION
  5. LORAZEPAM [Concomitant]
     Indication: SLEEP DISORDER
  6. AMBIEN [Concomitant]
     Indication: SLEEP DISORDER
  7. VANCENASE [Concomitant]
     Indication: HYPERSENSITIVITY
  8. PATANOL [Concomitant]
     Indication: HYPERSENSITIVITY
  9. CLIMARA [Concomitant]
     Indication: HORMONE REPLACEMENT THERAPY

REACTIONS (4)
  - BLOOD PRESSURE INCREASED [None]
  - ERYTHEMA [None]
  - PAIN IN EXTREMITY [None]
  - PRURITUS [None]
